FAERS Safety Report 24974970 (Version 4)
Quarter: 2025Q2

REPORT INFORMATION
  Report Type: Spontaneous
  Country: BE (occurrence: BE)
  Receive Date: 20250217
  Receipt Date: 20250403
  Transmission Date: 20250716
  Serious: Yes (Death, Other)
  Sender: SANDOZ
  Company Number: BE-AMGEN-BELSP2025020498

PATIENT
  Age: 67 Year
  Sex: Female

DRUGS (20)
  1. AVASTIN [Suspect]
     Active Substance: BEVACIZUMAB
     Indication: Ovarian epithelial cancer
     Dosage: 10 MG/KG, CYCLIC (EVERY 2 WEEKS)
     Route: 065
     Dates: start: 202402
  2. CARBOPLATIN [Suspect]
     Active Substance: CARBOPLATIN
     Route: 065
     Dates: start: 2022, end: 202309
  3. CARBOPLATIN [Suspect]
     Active Substance: CARBOPLATIN
     Route: 065
     Dates: start: 2013
  4. CARBOPLATIN [Suspect]
     Active Substance: CARBOPLATIN
     Route: 065
     Dates: start: 2012
  5. CARBOPLATIN [Suspect]
     Active Substance: CARBOPLATIN
     Indication: Ovarian epithelial cancer
     Route: 065
     Dates: start: 2012
  6. CARBOPLATIN [Suspect]
     Active Substance: CARBOPLATIN
     Route: 065
     Dates: start: 202202, end: 202309
  7. CARBOPLATIN [Suspect]
     Active Substance: CARBOPLATIN
     Route: 065
     Dates: start: 2014
  8. FILGRASTIM [Suspect]
     Active Substance: FILGRASTIM
     Indication: Ovarian epithelial cancer
     Dosage: UNK UNK, Q3WK (6 CYCLES)
     Route: 065
  9. FILGRASTIM [Suspect]
     Active Substance: FILGRASTIM
     Route: 065
     Dates: start: 2012
  10. LENOGRASTIM [Suspect]
     Active Substance: LENOGRASTIM
     Indication: Ovarian epithelial cancer
     Route: 065
     Dates: start: 2012
  11. LENOGRASTIM [Suspect]
     Active Substance: LENOGRASTIM
     Route: 065
     Dates: start: 2012
  12. DOXORUBICIN HYDROCHLORIDE [Suspect]
     Active Substance: DOXORUBICIN HYDROCHLORIDE
     Route: 065
  13. DOXORUBICIN HYDROCHLORIDE [Suspect]
     Active Substance: DOXORUBICIN HYDROCHLORIDE
     Indication: Ovarian epithelial cancer
     Route: 065
  14. OLAPARIB [Suspect]
     Active Substance: OLAPARIB
     Dosage: 600 MG/DAG
     Route: 065
     Dates: start: 201504, end: 202305
  15. OLAPARIB [Suspect]
     Active Substance: OLAPARIB
     Indication: Ovarian epithelial cancer
     Route: 065
     Dates: start: 201504, end: 202305
  16. PACLITAXEL [Suspect]
     Active Substance: PACLITAXEL
     Route: 065
     Dates: start: 2012
  17. PACLITAXEL [Suspect]
     Active Substance: PACLITAXEL
     Indication: Ovarian epithelial cancer
     Route: 065
     Dates: start: 2012
  18. PACLITAXEL [Suspect]
     Active Substance: PACLITAXEL
     Route: 065
     Dates: start: 2014
  19. PACLITAXEL [Suspect]
     Active Substance: PACLITAXEL
     Route: 065
     Dates: start: 2014
  20. TALAZOPARIB [Suspect]
     Active Substance: TALAZOPARIB
     Indication: Ovarian epithelial cancer
     Dosage: 1 MG/DAG
     Route: 065
     Dates: start: 202309

REACTIONS (8)
  - Death [Fatal]
  - Second primary malignancy [Fatal]
  - Acute myeloid leukaemia [Fatal]
  - Ovarian cancer metastatic [Unknown]
  - Disseminated intravascular coagulation [Unknown]
  - Myelodysplastic syndrome transformation [Unknown]
  - Transformation to acute myeloid leukaemia [Unknown]
  - Ovarian cancer recurrent [Unknown]

NARRATIVE: CASE EVENT DATE: 20240301
